FAERS Safety Report 19608380 (Version 3)
Quarter: 2021Q3

REPORT INFORMATION
  Report Type: Report from Study
  Country: US (occurrence: US)
  Receive Date: 20210726
  Receipt Date: 20210830
  Transmission Date: 20211014
  Serious: No
  Sender: FDA-Public Use
  Company Number: NVSC2021US159200

PATIENT
  Age: 75 Year
  Sex: Male
  Weight: 81.65 kg

DRUGS (3)
  1. ENTRESTO [Suspect]
     Active Substance: SACUBITRIL\VALSARTAN
     Dosage: UNK UNK, BID
     Route: 048
     Dates: start: 20210701
  2. ENTRESTO [Suspect]
     Active Substance: SACUBITRIL\VALSARTAN
     Indication: CARDIAC FAILURE
     Dosage: 24/26 MG, BID
     Route: 048
     Dates: start: 20200726
  3. ENTRESTO [Suspect]
     Active Substance: SACUBITRIL\VALSARTAN
     Dosage: 49.51 MG, UNKNOWN
     Route: 065
     Dates: start: 20210818

REACTIONS (4)
  - Cough [Unknown]
  - Skin discolouration [Not Recovered/Not Resolved]
  - Chromaturia [Unknown]
  - Wrong technique in product usage process [Unknown]

NARRATIVE: CASE EVENT DATE: 20210701
